FAERS Safety Report 18151276 (Version 1)
Quarter: 2020Q3

REPORT INFORMATION
  Report Type: Spontaneous
  Country: US (occurrence: US)
  Receive Date: 20200814
  Receipt Date: 20200814
  Transmission Date: 20201103
  Serious: Yes (Hospitalization)
  Sender: FDA-Public Use
  Company Number: None

PATIENT
  Age: 78 Year
  Sex: Male

DRUGS (22)
  1. BD PEN [Concomitant]
  2. TRADZODONE [Concomitant]
  3. ALLOPURINOL. [Concomitant]
     Active Substance: ALLOPURINOL
  4. SODIUM BICAR [Concomitant]
  5. CARVEDILOL. [Concomitant]
     Active Substance: CARVEDILOL
  6. DIPHENA [Concomitant]
  7. TAMSULOSIN [Concomitant]
     Active Substance: TAMSULOSIN
  8. CAPECITABINE. [Suspect]
     Active Substance: CAPECITABINE
     Indication: COLON CANCER
     Route: 048
     Dates: start: 20191228
  9. DULOXETINE. [Concomitant]
     Active Substance: DULOXETINE
  10. LANTUS [Concomitant]
     Active Substance: INSULIN GLARGINE
  11. LEVOTHYROXIN [Concomitant]
     Active Substance: LEVOTHYROXINE
  12. PANTOPRAZOLE [Concomitant]
     Active Substance: PANTOPRAZOLE
  13. FAMOTIDINE. [Concomitant]
     Active Substance: FAMOTIDINE
  14. ISOSORB MONO [Concomitant]
     Active Substance: ISOSORBIDE MONONITRATE
  15. JARDIANCE [Concomitant]
     Active Substance: EMPAGLIFLOZIN
  16. METOPROLOL TARTRATE. [Concomitant]
     Active Substance: METOPROLOL TARTRATE
  17. VICTOZA [Concomitant]
     Active Substance: LIRAGLUTIDE
  18. ATOVASTATIN [Concomitant]
     Active Substance: ATORVASTATIN
  19. ROSUVASTATIN. [Concomitant]
     Active Substance: ROSUVASTATIN
  20. CAPECITABINE. [Suspect]
     Active Substance: CAPECITABINE
     Indication: COLON CANCER
     Route: 048
     Dates: start: 20191228
  21. DRONABINOL. [Concomitant]
     Active Substance: DRONABINOL
  22. FEBUXOSTAT. [Concomitant]
     Active Substance: FEBUXOSTAT

REACTIONS (1)
  - Diarrhoea [None]

NARRATIVE: CASE EVENT DATE: 20200812
